FAERS Safety Report 9501403 (Version 2)
Quarter: 2013Q3

REPORT INFORMATION
  Report Type: Report from Study
  Country: US (occurrence: US)
  Receive Date: 20130905
  Receipt Date: 20130910
  Transmission Date: 20140515
  Serious: Yes (Other)
  Sender: FDA-Public Use
  Company Number: US-VERTEX PHARMACEUTICALS INC-2013-009191

PATIENT
  Age: 48 Year
  Sex: Male
  Weight: 90 kg

DRUGS (5)
  1. VX-950 (TELAPREVIR) [Suspect]
     Indication: HEPATITIS C
     Dosage: 750 MG, TID
     Route: 048
     Dates: start: 20130816, end: 20130818
  2. PEGASYS [Suspect]
     Indication: HEPATITIS C
     Dosage: 180 ?G, QW
     Route: 058
     Dates: start: 20130816, end: 20130818
  3. RIBAVIRIN [Suspect]
     Indication: HEPATITIS C
     Dosage: UNK, BID
     Route: 048
     Dates: start: 20130816, end: 20130818
  4. COCAINE [Concomitant]
  5. PCP [Concomitant]

REACTIONS (8)
  - Loss of consciousness [Unknown]
  - Dehydration [Unknown]
  - Laceration [Recovered/Resolved]
  - Drug screen positive [Unknown]
  - Muscle rigidity [Unknown]
  - Drug dose omission [Not Recovered/Not Resolved]
  - Swelling face [Recovered/Resolved]
  - Local swelling [Recovered/Resolved]
